FAERS Safety Report 15289729 (Version 1)
Quarter: 2018Q3

REPORT INFORMATION
  Report Type: Spontaneous
  Country: GB (occurrence: GB)
  Receive Date: 20180803
  Receipt Date: 20180803
  Transmission Date: 20181010
  Serious: Yes (Disabling)
  Sender: FDA-Public Use
  Company Number: None

PATIENT
  Age: 27 Year
  Sex: Female
  Weight: 57 kg

DRUGS (2)
  1. HUMIRA [Suspect]
     Active Substance: ADALIMUMAB
     Indication: CROHN^S DISEASE
     Route: 058
     Dates: start: 20170130, end: 20180508
  2. PROBIOTICS [Concomitant]
     Active Substance: PROBIOTICS NOS

REACTIONS (17)
  - Abdominal lymphadenopathy [None]
  - Scar [None]
  - Furuncle [None]
  - Secretion discharge [None]
  - Skin ulcer [None]
  - Psoriasis [None]
  - Skin lesion [None]
  - Gingival abscess [None]
  - Scab [None]
  - Skin disorder [None]
  - Rash [None]
  - Autoimmune disorder [None]
  - Lymphadenopathy [None]
  - Purulent discharge [None]
  - Pruritus [None]
  - Hidradenitis [None]
  - Skin exfoliation [None]
